FAERS Safety Report 4672889-2 (Version None)
Quarter: 2005Q2

REPORT INFORMATION
  Report Type: 
  Country: None (occurrence: None)
  Receive Date: 20050524
  Receipt Date: 20050510
  Transmission Date: 20051028
  Serious: Yes (Other)
  Sender: FDA-Public Use
  Company Number: GXKR2005GB01049

PATIENT
  Age: 71 Year
  Sex: Male

DRUGS (4)
  1. VERAPAMIL [Suspect]
     Indication: HEADACHE
     Dosage: SEE IMAGE
     Dates: start: 20001201, end: 20010901
  2. VERAPAMIL [Suspect]
     Indication: HEADACHE
     Dosage: SEE IMAGE
     Dates: start: 20011119
  3. PREDNISONE [Concomitant]
  4. SUMATRIPTAN (SUMATRIPTAN) [Concomitant]

REACTIONS (3)
  - LYMPHOMATOID PAPULOSIS [None]
  - RASH ERYTHEMATOUS [None]
  - SKIN ULCER [None]
